FAERS Safety Report 4868407-6 (Version None)
Quarter: 2005Q4

REPORT INFORMATION
  Report Type: 
  Country: None (occurrence: None)
  Receive Date: 20051229
  Receipt Date: 20051221
  Transmission Date: 20060501
  Serious: Yes (Congenital Anomaly)
  Sender: FDA-Public Use
  Company Number: JP-JPN-A20053168

PATIENT

DRUGS (3)
  1. PAXIL [Suspect]
     Dosage: 10MG PER DAY
     Dates: end: 20041102
  2. LUVOX [Concomitant]
  3. RIVOTRIL [Concomitant]

REACTIONS (2)
  - CONGENITAL VITREOUS ANOMALY [None]
  - DRUG EXPOSURE DURING PREGNANCY [None]
